FAERS Safety Report 5226237-X (Version None)
Quarter: 2007Q1

REPORT INFORMATION
  Report Type: 
  Country: None (occurrence: None)
  Receive Date: 20070129
  Receipt Date: 20070116
  Transmission Date: 20070707
  Serious: Yes (Other)
  Sender: FDA-Public Use
  Company Number: AUWYE246117OCT06

PATIENT
  Sex: Female

DRUGS (2)
  1. EFFEXOR XR [Suspect]
     Dosage: 375 MG 1X PER 1 DAY; ORAL
     Route: 048
  2. LITHIUM (LITHIUM, , 0) [Suspect]
     Dosage: 1200 MG 1X PER 1 DAY; ORAL
     Route: 048

REACTIONS (3)
  - DRUG INTERACTION [None]
  - PALPITATIONS [None]
  - WOLFF-PARKINSON-WHITE SYNDROME [None]
